FAERS Safety Report 12308660 (Version 1)
Quarter: 2016Q2

REPORT INFORMATION
  Report Type: Spontaneous
  Country: GB (occurrence: GB)
  Receive Date: 20160427
  Receipt Date: 20160427
  Transmission Date: 20160815
  Serious: Yes (Other)
  Sender: FDA-Public Use
  Company Number: GB-AMGEN-GBRSP2016021453

PATIENT
  Sex: Female

DRUGS (1)
  1. XGEVA [Suspect]
     Active Substance: DENOSUMAB
     Indication: PRODUCT USED FOR UNKNOWN INDICATION
     Dosage: UNK
     Route: 065

REACTIONS (8)
  - Fatigue [Unknown]
  - Emotional disorder [Unknown]
  - Atrial fibrillation [Unknown]
  - Dyspnoea [Unknown]
  - Sciatica [Recovering/Resolving]
  - Dry skin [Unknown]
  - Lymphoedema [Unknown]
  - Labyrinthitis [Recovering/Resolving]
